FAERS Safety Report 7041595-1 (Version None)
Quarter: 2010Q4

REPORT INFORMATION
  Report Type: 
  Country: None (occurrence: None)
  Receive Date: 20101013
  Receipt Date: 20100316
  Transmission Date: 20110411
  Serious: No
  Sender: FDA-Public Use
  Company Number: US-ASTRAZENECA-2010SE11541

PATIENT
  Age: 68 Year
  Sex: Female
  Weight: 72.6 kg

DRUGS (3)
  1. SYMBICORT [Suspect]
     Indication: ASTHMA
     Dosage: TOTAL DAILY DOSE: 640 UG; 160/4.5 UG
     Route: 055
     Dates: start: 20100101, end: 20100101
  2. SYMBICORT [Suspect]
     Dosage: TOTAL DAILY DOSE: 320 UG; 80/4,5 UG
     Route: 055
     Dates: start: 20100101, end: 20100301
  3. CARDIZEM [Suspect]
     Indication: BLOOD PRESSURE
     Dates: end: 20100311

REACTIONS (2)
  - CIRCUMORAL OEDEMA [None]
  - DYSPHONIA [None]
